FAERS Safety Report 4335173-2 (Version None)
Quarter: 2004Q2

REPORT INFORMATION
  Report Type: 
  Country: None (occurrence: None)
  Receive Date: 20040408
  Receipt Date: 20040330
  Transmission Date: 20050107
  Serious: Yes (Death, Hospitalization)
  Sender: FDA-Public Use
  Company Number: BE-BRISTOL-MYERS SQUIBB COMPANY-12549523

PATIENT
  Age: 84 Year
  Sex: Male

DRUGS (6)
  1. GLUCOPHAGE [Suspect]
     Indication: DIABETES MELLITUS
     Dosage: SEVERAL MONTHS, POSSIBLY 9
     Route: 048
  2. SINEMET [Concomitant]
     Indication: PARKINSON'S DISEASE
  3. REQUIP [Concomitant]
     Indication: PARKINSON'S DISEASE
  4. COMTAN [Concomitant]
     Indication: PARKINSON'S DISEASE
  5. CIPRAMIL [Concomitant]
     Indication: DEPRESSION
  6. ALDACTAZINE [Concomitant]

REACTIONS (2)
  - LACTIC ACIDOSIS [None]
  - RESPIRATORY FAILURE [None]
